FAERS Safety Report 9706477 (Version 2)
Quarter: 2013Q4

REPORT INFORMATION
  Report Type: Spontaneous
  Country: JP (occurrence: JP)
  Receive Date: 20131125
  Receipt Date: 20131202
  Transmission Date: 20140711
  Serious: Yes (Death)
  Sender: FDA-Public Use
  Company Number: JP-AMGEN-JPNSP2013082667

PATIENT
  Age: 7 Decade
  Sex: Female

DRUGS (4)
  1. VECTIBIX [Suspect]
     Indication: RECTAL CANCER
     Dosage: UNK
     Route: 041
  2. OXALIPLATIN [Concomitant]
     Indication: RECTAL CANCER
     Dosage: UNK
     Route: 041
  3. FLUOROURACIL [Concomitant]
     Indication: RECTAL CANCER
     Dosage: UNK
     Route: 042
  4. CALCIUM LEVOFOLINATE [Concomitant]
     Indication: RECTAL CANCER
     Dosage: UNK
     Route: 041

REACTIONS (1)
  - Tumour lysis syndrome [Fatal]
